FAERS Safety Report 23229134 (Version 1)
Quarter: 2023Q4

REPORT INFORMATION
  Report Type: Spontaneous
  Country: US (occurrence: US)
  Receive Date: 20231127
  Receipt Date: 20231127
  Transmission Date: 20240110
  Serious: No
  Sender: FDA-Public Use
  Company Number: US-AUROBINDO-AUR-APL-2023-034215

PATIENT
  Age: 62 Year
  Sex: Female
  Weight: 108 kg

DRUGS (4)
  1. LOSARTAN POTASSIUM [Suspect]
     Active Substance: LOSARTAN POTASSIUM
     Indication: Hypertension
     Dosage: 50 MILLIGRAM, ONCE A DAY
     Route: 065
     Dates: start: 202212, end: 20230421
  2. AMLODIPINE [Concomitant]
     Active Substance: AMLODIPINE BESYLATE
     Indication: Blood pressure measurement
     Dosage: 5 MILLIGRAM
     Route: 065
  3. LIDOCAINE [Concomitant]
     Active Substance: LIDOCAINE
     Indication: Product used for unknown indication
     Dosage: UNK
     Route: 065
  4. PROBUPHINE [Concomitant]
     Active Substance: BUPRENORPHINE HYDROCHLORIDE
     Indication: Blood cholesterol
     Dosage: UNK
     Route: 065

REACTIONS (6)
  - Dizziness [Recovering/Resolving]
  - Urticaria [Recovering/Resolving]
  - Hypotension [Recovering/Resolving]
  - Product commingling [Unknown]
  - Incorrect dose administered [Unknown]
  - Overdose [Unknown]

NARRATIVE: CASE EVENT DATE: 20230422
